FAERS Safety Report 17976145 (Version 1)
Quarter: 2020Q3

REPORT INFORMATION
  Report Type: Spontaneous
  Country: IT (occurrence: IT)
  Receive Date: 20200702
  Receipt Date: 20200702
  Transmission Date: 20201103
  Serious: Yes (Hospitalization)
  Sender: FDA-Public Use
  Company Number: NVSC2020IT185862

PATIENT
  Age: 23 Year
  Sex: Male

DRUGS (1)
  1. OLANZAPINE. [Suspect]
     Active Substance: OLANZAPINE
     Indication: INTENTIONAL PRODUCT MISUSE
     Dosage: 12 DF, TOTAL
     Route: 065
     Dates: start: 20191119, end: 20191119

REACTIONS (3)
  - Intentional product misuse [Unknown]
  - Sopor [Unknown]
  - Speech disorder [Unknown]

NARRATIVE: CASE EVENT DATE: 20191119
